FAERS Safety Report 8295896-X (Version None)
Quarter: 2012Q2

REPORT INFORMATION
  Report Type: 
  Country: None (occurrence: None)
  Receive Date: 20120418
  Receipt Date: 20120409
  Transmission Date: 20120825
  Serious: Yes (Hospitalization, Other)
  Sender: FDA-Public Use
  Company Number: US-BAYER-2012-003848

PATIENT
  Age: 32 Year
  Sex: Female
  Weight: 95.238 kg

DRUGS (2)
  1. YASMIN [Suspect]
     Indication: CONTRACEPTION
     Dosage: UNK
     Route: 048
     Dates: start: 20010101, end: 20060101
  2. YAZ [Suspect]
     Indication: CONTRACEPTION
     Dosage: UNK
     Route: 048
     Dates: start: 20060101, end: 20080101

REACTIONS (9)
  - GALLBLADDER DISORDER [None]
  - EMOTIONAL DISTRESS [None]
  - ANXIETY [None]
  - HEPATIC FUNCTION ABNORMAL [None]
  - VOMITING [None]
  - INJURY [None]
  - BLOOD ALKALINE PHOSPHATASE INCREASED [None]
  - PAIN [None]
  - PSYCHOLOGICAL TRAUMA [None]
